FAERS Safety Report 4648820-2 (Version None)
Quarter: 2005Q2

REPORT INFORMATION
  Report Type: 
  Country: None (occurrence: None)
  Receive Date: 20050429
  Receipt Date: 20050119
  Transmission Date: 20051028
  Serious: Yes (Other)
  Sender: FDA-Public Use
  Company Number: US-MERCK-0501USA03303

PATIENT
  Age: 52 Year
  Sex: Male
  Weight: 86 kg

DRUGS (8)
  1. VIOXX [Suspect]
     Indication: OSTEOARTHRITIS
     Route: 048
     Dates: start: 20010801, end: 20020101
  2. VIOXX [Suspect]
     Route: 048
     Dates: start: 20010801, end: 20020101
  3. AMLODIPINE BESYLATE [Concomitant]
     Route: 065
  4. PRINIVIL [Concomitant]
     Route: 065
     Dates: start: 19990101
  5. RABEPRAZOLE SODIUM [Concomitant]
     Route: 065
  6. RANITIDINE [Concomitant]
     Route: 065
  7. TYLENOL [Concomitant]
     Indication: PAIN
     Route: 065
     Dates: start: 19980501, end: 20041101
  8. NORVASC [Concomitant]
     Route: 065
     Dates: start: 19990101, end: 20041209

REACTIONS (11)
  - ANXIETY [None]
  - ARTHRALGIA [None]
  - BLOOD CHOLESTEROL INCREASED [None]
  - CEREBROVASCULAR ACCIDENT [None]
  - CONVULSION [None]
  - DIABETES MELLITUS [None]
  - EMOTIONAL DISTRESS [None]
  - GAIT DISTURBANCE [None]
  - GLAUCOMA [None]
  - LOW DENSITY LIPOPROTEIN INCREASED [None]
  - POST PROCEDURAL COMPLICATION [None]
